FAERS Safety Report 19058899 (Version 1)
Quarter: 2021Q1

REPORT INFORMATION
  Report Type: Spontaneous
  Country: US (occurrence: US)
  Receive Date: 20210325
  Receipt Date: 20210325
  Transmission Date: 20210420
  Serious: Yes (Hospitalization)
  Sender: FDA-Public Use
  Company Number: US-PERRIGO-21US003644

PATIENT
  Age: 66 Year
  Sex: Male
  Weight: 102.49 kg

DRUGS (3)
  1. POLYETHYLENE GLYCOL 3350. [Suspect]
     Active Substance: POLYETHYLENE GLYCOL 3350
     Indication: CONSTIPATION
     Dosage: 17?34 GRAMS, QD PRN
     Route: 048
  2. POLYETHYLENE GLYCOL 3350. [Suspect]
     Active Substance: POLYETHYLENE GLYCOL 3350
     Dosage: APPROX. 85 GRAMS, SINGLE
     Route: 048
     Dates: start: 20210305, end: 20210305
  3. POLYETHYLENE GLYCOL 3350. [Suspect]
     Active Substance: POLYETHYLENE GLYCOL 3350
     Dosage: APPROX. 68 GRAMS, SINGLE
     Route: 048
     Dates: start: 20210304, end: 20210304

REACTIONS (7)
  - Overdose [Unknown]
  - Pyrexia [Recovered/Resolved]
  - Incorrect dose administered [Unknown]
  - Asthenia [Unknown]
  - Renal failure [Unknown]
  - Incoherent [Unknown]
  - Drug ineffective [Unknown]

NARRATIVE: CASE EVENT DATE: 20210304
